FAERS Safety Report 4563545-X (Version None)
Quarter: 2005Q1

REPORT INFORMATION
  Report Type: 
  Country: None (occurrence: None)
  Receive Date: 20050128
  Receipt Date: 20040909
  Transmission Date: 20050727
  Serious: No
  Sender: FDA-Public Use
  Company Number: US-GLAXOSMITHKLINE-A0525076A

PATIENT
  Age: 14 Year
  Sex: Male

DRUGS (3)
  1. WELLBUTRIN [Suspect]
     Dosage: 300MG PER DAY
     Route: 048
  2. NAPROSYN [Concomitant]
  3. NAPROSYN [Concomitant]
     Route: 065

REACTIONS (1)
  - INCREASED TENDENCY TO BRUISE [None]
